FAERS Safety Report 4951607-4 (Version None)
Quarter: 2006Q1

REPORT INFORMATION
  Report Type: 
  Country: None (occurrence: None)
  Receive Date: 20060323
  Receipt Date: 20060320
  Transmission Date: 20060701
  Serious: Yes (Other)
  Sender: FDA-Public Use
  Company Number: JP-SP-2006-00636

PATIENT
  Age: 35 Year
  Sex: Male

DRUGS (1)
  1. BCG  THERAPEUTICS [Suspect]
     Indication: CARCINOMA IN SITU OF BLADDER
     Dosage: ONCE A WEEK
     Route: 043
     Dates: start: 20040101

REACTIONS (3)
  - BLADDER DISORDER [None]
  - DYSURIA [None]
  - POLLAKIURIA [None]
